FAERS Safety Report 6518182-4 (Version None)
Quarter: 2009Q4

REPORT INFORMATION
  Report Type: 
  Country: None (occurrence: None)
  Receive Date: 20091223
  Receipt Date: 20091223
  Transmission Date: 20100525
  Serious: No
  Sender: FDA-Public Use
  Company Number: None

PATIENT
  Age: 64 Year
  Sex: Male
  Weight: 92.5338 kg

DRUGS (4)
  1. ZICAM COLD REMEDY ORAL MIST [Suspect]
     Indication: NASOPHARYNGITIS
     Dosage: Q 3 HRS FOR 5 DAYS
     Dates: start: 20091123, end: 20091128
  2. SIVVASTATTIN [Concomitant]
  3. VITAMIN B COMPLEX CAP [Concomitant]
  4. FOLIC ACID [Concomitant]

REACTIONS (1)
  - AGEUSIA [None]
